FAERS Safety Report 6849654-0 (Version None)
Quarter: 2010Q3

REPORT INFORMATION
  Report Type: 
  Country: None (occurrence: None)
  Receive Date: 20100716
  Receipt Date: 20071002
  Transmission Date: 20110219
  Serious: No
  Sender: FDA-Public Use
  Company Number: US-PFIZER INC-2007083699

PATIENT
  Sex: Female
  Weight: 72.6 kg

DRUGS (8)
  1. CHANTIX [Suspect]
     Indication: SMOKING CESSATION THERAPY
     Dates: start: 20071001
  2. BENICAR [Concomitant]
     Indication: CARDIAC FAILURE CONGESTIVE
  3. LASIX [Concomitant]
     Indication: CARDIAC FAILURE CONGESTIVE
  4. ALDACTONE [Concomitant]
     Indication: CARDIAC FAILURE CONGESTIVE
  5. SYNTHROID [Concomitant]
  6. COENZYME Q10 [Concomitant]
  7. ACETYLSALICYLIC ACID [Concomitant]
  8. VYTORIN [Concomitant]

REACTIONS (4)
  - DISTURBANCE IN ATTENTION [None]
  - DRUG INTOLERANCE [None]
  - INSOMNIA [None]
  - LETHARGY [None]
